FAERS Safety Report 6140574 (Version 1)
Quarter: 2020Q3

REPORT INFORMATION
  Report Type: Report from Study
  Country: AR (occurrence: AR)
  Receive Date: 20061003
  Receipt Date: 20061003
  Transmission Date: 20201104
  Serious: Yes (Death, Hospitalization)
  Sender: FDA-Public Use
  Company Number: AR-ROCHE-441534

PATIENT
  Age: 78 Year
  Sex: Female
  Weight: 71 kg

DRUGS (8)
  1. IBANDRONIC ACID. [Suspect]
     Active Substance: IBANDRONIC ACID
     Dosage: LOADING DOSE: INTRAVENOUS INFUSION OVER 15 MINS ON DAYS 1, 2 AND 3.
     Route: 042
     Dates: start: 20051227, end: 20051229
  2. DIGOXINE [Concomitant]
     Active Substance: DIGOXIN
     Dosage: TDD: 25.
     Dates: start: 20060319
  3. LASIX [Concomitant]
     Active Substance: FUROSEMIDE
     Dosage: TDD: 20. EPISODIC.
     Dates: end: 20060319
  4. TRAMADOL HYDROCHLORIDE. [Concomitant]
     Active Substance: TRAMADOL HYDROCHLORIDE
     Dosage: TDD: 200
     Dates: start: 20050607, end: 20060319
  5. ENALAPRIL [Concomitant]
     Active Substance: ENALAPRIL
     Dosage: TDD: 10
     Dates: start: 20030528, end: 20060319
  6. IBANDRONIC ACID. [Suspect]
     Active Substance: IBANDRONIC ACID
     Dosage: MAINTENANCE DOSE WITH INTRAVENOUS BLINDED IBANDRONIC ACID EVERY 3?4 WEEKS.
     Route: 042
     Dates: start: 20060119, end: 20060327
  7. DICLOFENAC [Concomitant]
     Active Substance: DICLOFENAC
     Dosage: TDD: 100
     Dates: start: 20050721, end: 20060319
  8. GLIBENCLAMIDE [Concomitant]
     Active Substance: GLYBURIDE
     Dosage: TDD: 10
     Dates: start: 20020615, end: 20060319

REACTIONS (3)
  - Intestinal obstruction [Recovered/Resolved]
  - Cardiac failure [Fatal]
  - Renal impairment [Not Recovered/Not Resolved]

NARRATIVE: CASE EVENT DATE: 20060319
